FAERS Safety Report 8460008-6 (Version None)
Quarter: 2012Q2

REPORT INFORMATION
  Report Type: 
  Country: None (occurrence: None)
  Receive Date: 20120622
  Receipt Date: 20120621
  Transmission Date: 20120825
  Serious: Yes (Life-Threatening)
  Sender: FDA-Public Use
  Company Number: PHHY2012GB053224

PATIENT
  Age: 29 Year
  Sex: Male
  Weight: 54 kg

DRUGS (7)
  1. ZOPICLONE [Concomitant]
     Indication: INSOMNIA
     Dosage: 7.5 MG, QD
     Route: 048
     Dates: start: 20120513
  2. ACETAMINOPHEN [Concomitant]
     Indication: ABDOMINAL PAIN
     Dosage: 1 G, QID
     Route: 048
     Dates: start: 20120513
  3. CLOPIXOL [Interacting]
     Indication: PSYCHOTIC DISORDER
     Dosage: 100 MG DAILY
     Route: 030
     Dates: start: 20120531, end: 20120531
  4. LORAZEPAM [Concomitant]
     Indication: AGITATION
     Dosage: 1 MG, QID
     Route: 048
     Dates: start: 20120513
  5. TRAMADOL HCL [Suspect]
     Indication: ABDOMINAL PAIN
     Route: 048
     Dates: start: 20120524
  6. OLANZAPINE [Concomitant]
     Indication: PSYCHOTIC DISORDER
     Dosage: 5 MG, BID
     Route: 048
     Dates: start: 20120513
  7. CODEINE [Concomitant]
     Indication: PAIN
     Dosage: 60 MG, QID
     Route: 048
     Dates: start: 20120521, end: 20120524

REACTIONS (5)
  - DYSKINESIA [None]
  - SYNCOPE [None]
  - DRUG INTERACTION [None]
  - MUSCLE RIGIDITY [None]
  - CONVULSION [None]
